FAERS Safety Report 20183919 (Version 1)
Quarter: 2021Q4

REPORT INFORMATION
  Report Type: Spontaneous
  Country: US (occurrence: US)
  Receive Date: 20211214
  Receipt Date: 20211214
  Transmission Date: 20220304
  Serious: No
  Sender: FDA-Public Use
  Company Number: US-ABBVIE-21K-163-3766407-00

PATIENT
  Sex: Male
  Weight: 80.358 kg

DRUGS (7)
  1. IMBRUVICA [Suspect]
     Active Substance: IBRUTINIB
     Indication: Non-Hodgkin^s lymphoma
     Route: 048
     Dates: start: 202009, end: 20210125
  2. VITAMIN D3 [Concomitant]
     Active Substance: CHOLECALCIFEROL
     Indication: B-cell lymphoma
  3. VITAMIN D3 [Concomitant]
     Active Substance: CHOLECALCIFEROL
     Indication: Supplementation therapy
  4. PUMPKIN SEED OIL [Concomitant]
     Indication: B-cell lymphoma
  5. PUMPKIN SEED OIL [Concomitant]
     Indication: Supplementation therapy
  6. ZEOLITE [Concomitant]
     Indication: B-cell lymphoma
  7. ZEOLITE [Concomitant]
     Indication: Supplementation therapy

REACTIONS (2)
  - Heart rate increased [Recovered/Resolved]
  - Blood pressure systolic abnormal [Recovered/Resolved]

NARRATIVE: CASE EVENT DATE: 20200101
